FAERS Safety Report 25170294 (Version 1)
Quarter: 2025Q2

REPORT INFORMATION
  Report Type: Spontaneous
  Country: ES (occurrence: ES)
  Receive Date: 20250408
  Receipt Date: 20250408
  Transmission Date: 20250716
  Serious: Yes (Other)
  Sender: ABBVIE
  Company Number: ES-ABBVIE-6215353

PATIENT
  Age: 61 Year
  Sex: Male

DRUGS (7)
  1. SILODOSIN [Suspect]
     Active Substance: SILODOSIN
     Indication: Benign prostatic hyperplasia
     Route: 048
     Dates: start: 20250311, end: 20250317
  2. Benferol [Concomitant]
     Indication: Product used for unknown indication
     Dates: start: 20200515
  3. Nevirapina kern pharma [Concomitant]
     Indication: Product used for unknown indication
     Dates: start: 20170606
  4. ASPIRIN [Concomitant]
     Active Substance: ASPIRIN
     Indication: Product used for unknown indication
     Dates: start: 20091110
  5. OMEPRAZOLE MAGNESIUM [Concomitant]
     Active Substance: OMEPRAZOLE MAGNESIUM
     Indication: Product used for unknown indication
     Dates: start: 20091110
  6. Emtricitabina/tenofovir disoproxilo teva [Concomitant]
     Indication: Product used for unknown indication
     Dates: start: 20170606
  7. CRESTOR [Concomitant]
     Active Substance: ROSUVASTATIN CALCIUM
     Indication: Product used for unknown indication
     Dates: start: 20171214

REACTIONS (2)
  - Ejaculation delayed [Recovered/Resolved]
  - Nasal congestion [Unknown]

NARRATIVE: CASE EVENT DATE: 20250312
